FAERS Safety Report 5728342-8 (Version None)
Quarter: 2008Q2

REPORT INFORMATION
  Report Type: 
  Country: None (occurrence: None)
  Receive Date: 20080506
  Receipt Date: 20080429
  Transmission Date: 20081010
  Serious: Yes (Other)
  Sender: FDA-Public Use
  Company Number: PHBS2008IE03746

PATIENT
  Age: 78 Year
  Sex: Female
  Weight: 55 kg

DRUGS (8)
  1. EXELON [Suspect]
     Indication: DEMENTIA ALZHEIMER'S TYPE
     Dosage: 4.6 MG, QD
     Route: 062
     Dates: start: 20080202, end: 20080331
  2. EXELON [Suspect]
     Dates: start: 20080327
  3. NU-SEALS ASPIRIN [Concomitant]
     Dosage: 75 MG, UNK
     Route: 048
     Dates: start: 20071121
  4. MOBIC [Concomitant]
     Dosage: 7.5 MG, UNK
     Route: 048
     Dates: start: 20071121
  5. LUSTRAL [Concomitant]
     Dosage: 100 MG, UNK
     Route: 048
     Dates: start: 20071121
  6. LOSEC I.V. [Concomitant]
     Dosage: 20 MG, UNK
     Route: 048
     Dates: start: 20071121
  7. PRAVASTATIN [Concomitant]
     Dosage: 10 MG, UNK
     Route: 048
     Dates: start: 20071121
  8. ZOLPIDEM TARTRATE [Concomitant]
     Dosage: 10 MG, UNK
     Route: 048
     Dates: start: 20071121

REACTIONS (7)
  - ABNORMAL BEHAVIOUR [None]
  - APPLICATION SITE ERYTHEMA [None]
  - APPLICATION SITE PRURITUS [None]
  - APPLICATION SITE RASH [None]
  - CONDITION AGGRAVATED [None]
  - MEMORY IMPAIRMENT [None]
  - POOR QUALITY SLEEP [None]
